FAERS Safety Report 10231038 (Version 1)
Quarter: 2014Q2

REPORT INFORMATION
  Report Type: Spontaneous
  Country: MY (occurrence: MY)
  Receive Date: 20140611
  Receipt Date: 20140611
  Transmission Date: 20141212
  Serious: Yes (Other)
  Sender: FDA-Public Use
  Company Number: MY-SA-2014SA071539

PATIENT
  Age: 71 Year
  Sex: Male

DRUGS (11)
  1. APROVEL [Suspect]
     Indication: HYPERTENSION
     Route: 048
     Dates: start: 20130212
  2. OFRAMAX [Suspect]
     Indication: PNEUMONIA
     Route: 042
     Dates: start: 20130212
  3. BUDESONIDE [Concomitant]
  4. FENOTEROL HYDROBROMIDE/IPRATROPIUM BROMIDE [Concomitant]
  5. THEOPHYLLINE [Concomitant]
  6. ATORVASTATIN [Concomitant]
  7. TIOTROPIUM [Concomitant]
  8. CLOPIDOGREL [Concomitant]
  9. AMLODIPINE [Concomitant]
  10. AZITHROMYCIN [Concomitant]
  11. BROMHEXINE [Concomitant]

REACTIONS (1)
  - Stevens-Johnson syndrome [Unknown]
